FAERS Safety Report 14689938 (Version 1)
Quarter: 2018Q1

REPORT INFORMATION
  Report Type: Spontaneous
  Country: TR (occurrence: TR)
  Receive Date: 20180328
  Receipt Date: 20180328
  Transmission Date: 20180509
  Serious: Yes (Life-Threatening, Hospitalization, Other)
  Sender: FDA-Public Use
  Company Number: TR-JNJFOC-20180336607

PATIENT
  Age: 18 Month

DRUGS (4)
  1. CONTRAMAL [Suspect]
     Active Substance: TRAMADOL HYDROCHLORIDE
     Indication: HIP SURGERY
     Route: 065
  2. ESMERON [Concomitant]
     Active Substance: ROCURONIUM BROMIDE
     Indication: HIP SURGERY
     Route: 065
  3. METOCLOPRAMIDE. [Concomitant]
     Active Substance: METOCLOPRAMIDE
     Indication: HIP SURGERY
     Route: 065
  4. SEVORANE [Concomitant]
     Active Substance: SEVOFLURANE
     Indication: HIP SURGERY
     Route: 065

REACTIONS (3)
  - Alanine aminotransferase increased [Unknown]
  - Acute hepatic failure [Unknown]
  - Aspartate aminotransferase increased [Unknown]
